FAERS Safety Report 4539402-1 (Version None)
Quarter: 2004Q4

REPORT INFORMATION
  Report Type: 
  Country: None (occurrence: None)
  Receive Date: 20041228
  Receipt Date: 20040714
  Transmission Date: 20050328
  Serious: Yes (Other)
  Sender: FDA-Public Use
  Company Number: US-ROCHE-374594

PATIENT
  Age: 53 Year
  Sex: Male
  Weight: 80.7 kg

DRUGS (1)
  1. PEGASYS [Suspect]
     Indication: HEPATITIS C VIRUS
     Dosage: STRENTH REPORTED AS 180.
     Route: 058
     Dates: end: 20030529

REACTIONS (3)
  - BLINDNESS UNILATERAL [None]
  - CATARACT [None]
  - VISION BLURRED [None]
